FAERS Safety Report 20370496 (Version 1)
Quarter: 2022Q1

REPORT INFORMATION
  Report Type: Report from Study
  Country: IL (occurrence: IL)
  Receive Date: 20220124
  Receipt Date: 20220124
  Transmission Date: 20220423
  Serious: No
  Sender: FDA-Public Use
  Company Number: IL-GLAXOSMITHKLINE-IL2021GSK072040

PATIENT
  Age: 76 Year
  Sex: Male
  Weight: 84 kg

DRUGS (1)
  1. BELANTAMAB MAFODOTIN [Suspect]
     Active Substance: BELANTAMAB MAFODOTIN
     Indication: Plasma cell myeloma
     Dosage: 200 MG, CYC
     Route: 042
     Dates: start: 20201004, end: 20210110

REACTIONS (1)
  - Keratopathy [Not Recovered/Not Resolved]

NARRATIVE: CASE EVENT DATE: 20201110
